FAERS Safety Report 7861640-0 (Version None)
Quarter: 2011Q4

REPORT INFORMATION
  Report Type: 
  Country: None (occurrence: None)
  Receive Date: 20111027
  Receipt Date: 20111018
  Transmission Date: 20120403
  Serious: Yes (Hospitalization)
  Sender: FDA-Public Use
  Company Number: PHHO2011US17575

PATIENT
  Sex: Female
  Weight: 62 kg

DRUGS (4)
  1. CARBOPLATIN [Suspect]
     Indication: METASTATIC MALIGNANT MELANOMA
     Dosage: 415 MG, EVERY 3 WEEKS
     Dates: start: 20110915, end: 20110915
  2. TAXOL [Suspect]
     Indication: METASTATIC MALIGNANT MELANOMA
     Dosage: 258 MG, EVERY 3 WEEKS
     Dates: start: 20110915, end: 20110922
  3. BEVACIZUMAB [Suspect]
     Indication: METASTATIC MALIGNANT MELANOMA
     Dosage: 620 MG, EVERY 3 WEEKS
     Dates: start: 20110915, end: 20110915
  4. AFINITOR [Suspect]
     Indication: METASTATIC MALIGNANT MELANOMA
     Dosage: 15 MG, THREE TIMES A WEEK
     Dates: start: 20110915, end: 20110921

REACTIONS (2)
  - MUSCULAR WEAKNESS [None]
  - DEHYDRATION [None]
